FAERS Safety Report 8295111 (Version 3)
Quarter: 2012Q4

REPORT INFORMATION
  Report Type: 
  Country: US (occurrence: US)
  Receive Date: 20111216
  Receipt Date: 20120920
  Transmission Date: 20130627
  Serious: Yes (Hospitalization)
  Sender: FDA-Public Use
  Company Number: US-MPIJNJ-2011-06238

PATIENT
  Age: 51 Year
  Sex: Male
  Weight: 85.26 kg

DRUGS (7)
  1. VELCADE [Suspect]
     Indication: MANTLE CELL LYMPHOMA
     Dosage: 1.3 mg/m2, Cyclic
     Route: 042
     Dates: start: 20111118
  2. VELCADE [Suspect]
     Dosage: 1.4 mg/m2, UNK
     Dates: start: 20111209
  3. RITUXIMAB [Suspect]
     Indication: MANTLE CELL LYMPHOMA
     Dosage: 375 mg/m2, Cyclic
     Route: 042
     Dates: start: 20111118
  4. CYCLOPHOSPHAMIDE [Suspect]
     Indication: MANTLE CELL LYMPHOMA
     Dosage: 300 mg/m2, Cyclic
     Route: 042
     Dates: start: 20111119
  5. VINCRISTINE [Suspect]
     Indication: MANTLE CELL LYMPHOMA
     Dosage: 2 mg, Cyclic
     Route: 042
     Dates: start: 20111119
  6. ADRIAMYCIN [Suspect]
     Indication: MANTLE CELL LYMPHOMA
     Dosage: 50 mg/m2, Cyclic
     Dates: start: 20111119
  7. DEXAMETHASONE [Suspect]
     Indication: MANTLE CELL LYMPHOMA
     Dosage: 40 mg, Cyclic
     Route: 048
     Dates: start: 20111123

REACTIONS (1)
  - Facial paresis [Recovered/Resolved]
